FAERS Safety Report 8986846 (Version 3)
Quarter: 2013Q1

REPORT INFORMATION
  Report Type: Spontaneous
  Country: US (occurrence: US)
  Receive Date: 20121227
  Receipt Date: 20130227
  Transmission Date: 20140127
  Serious: Yes (Death, Hospitalization)
  Sender: FDA-Public Use
  Company Number: US-BIOGENIDEC-2012BI062552

PATIENT
  Age: 40 Year
  Sex: Female

DRUGS (3)
  1. AVONEX [Suspect]
     Indication: MULTIPLE SCLEROSIS
     Route: 030
     Dates: start: 201112
  2. REBIF [Concomitant]
  3. COPAXONE [Concomitant]

REACTIONS (8)
  - Oesophageal stenosis [Fatal]
  - Cerebrovascular accident [Unknown]
  - Type 1 diabetes mellitus [Unknown]
  - Extremity contracture [Unknown]
  - Dysphagia [Unknown]
  - Speech disorder [Unknown]
  - Muscle spasticity [Unknown]
  - Muscular weakness [Unknown]
